FAERS Safety Report 14627915 (Version 1)
Quarter: 2018Q1

REPORT INFORMATION
  Report Type: Spontaneous
  Country: US (occurrence: US)
  Receive Date: 20180312
  Receipt Date: 20180312
  Transmission Date: 20180509
  Serious: No
  Sender: FDA-Public Use
  Company Number: US-MYLANLABS-2018M1012089

PATIENT
  Sex: Female

DRUGS (3)
  1. ESTRADIOL TABLETS, USP [Suspect]
     Active Substance: ESTRADIOL
     Dosage: 1 DF, TID
  2. ESTRADIOL TABLETS, USP [Suspect]
     Active Substance: ESTRADIOL
     Indication: GENDER DYSPHORIA
     Dosage: 1 DF, BID
     Route: 060
     Dates: start: 20171005
  3. FINASTERIDE. [Suspect]
     Active Substance: FINASTERIDE
     Indication: GENDER DYSPHORIA
     Dosage: UNK

REACTIONS (6)
  - Drug ineffective [Not Recovered/Not Resolved]
  - Product physical issue [Not Recovered/Not Resolved]
  - Fat redistribution [Not Recovered/Not Resolved]
  - Gender dysphoria [Not Recovered/Not Resolved]
  - Mental disorder [Not Recovered/Not Resolved]
  - Oestradiol decreased [Not Recovered/Not Resolved]
